FAERS Safety Report 25835944 (Version 1)
Quarter: 2025Q3

REPORT INFORMATION
  Report Type: Spontaneous
  Country: EU (occurrence: EU)
  Receive Date: 20250923
  Receipt Date: 20250923
  Transmission Date: 20251020
  Serious: Yes (Other)
  Sender: SANDOZ
  Company Number: EU-SANDOZ-SDZ2025DE069218

PATIENT
  Age: 28 Year
  Sex: Female

DRUGS (1)
  1. RISPERIDONE [Suspect]
     Active Substance: RISPERIDONE
     Indication: Acute psychosis
     Dosage: 2 MG PER DAY
     Route: 065
     Dates: start: 20250724

REACTIONS (8)
  - Hyperprolactinaemia [Unknown]
  - Drug tolerance [Unknown]
  - Indifference [Unknown]
  - Hypoaesthesia [Unknown]
  - Balance disorder [Unknown]
  - Cognitive disorder [Unknown]
  - Vision blurred [Unknown]
  - Drug effect less than expected [Unknown]
